FAERS Safety Report 20993739 (Version 1)
Quarter: 2022Q2

REPORT INFORMATION
  Report Type: Spontaneous
  Country: None (occurrence: A1)
  Receive Date: 20220622
  Receipt Date: 20220622
  Transmission Date: 20220721
  Serious: Yes (Hospitalization)
  Sender: FDA-Public Use
  Company Number: A1-Avion Pharmaceuticals, LLC-2130161

PATIENT
  Age: 76 Year
  Sex: Female

DRUGS (6)
  1. DHIVY [Suspect]
     Active Substance: CARBIDOPA\LEVODOPA
     Indication: Parkinson^s disease
     Route: 065
  2. BENSERAZIDE [Suspect]
     Active Substance: BENSERAZIDE
     Route: 065
  3. AMANTADINE. [Suspect]
     Active Substance: AMANTADINE HYDROCHLORIDE
     Route: 065
  4. PIRIBEDIL [Suspect]
     Active Substance: PIRIBEDIL
     Route: 065
  5. NIFEDIPINE [Concomitant]
     Active Substance: NIFEDIPINE
  6. NALOXONE HYDROCHLORIDE [Concomitant]
     Active Substance: NALOXONE HYDROCHLORIDE

REACTIONS (5)
  - Altered state of consciousness [Unknown]
  - Hallucinations, mixed [Unknown]
  - Insomnia [Unknown]
  - Delirium [Unknown]
  - Psychotic disorder [Unknown]
